FAERS Safety Report 5304900-X (Version None)
Quarter: 2007Q2

REPORT INFORMATION
  Report Type: 
  Country: None (occurrence: None)
  Receive Date: 20070416
  Receipt Date: 20070409
  Transmission Date: 20071010
  Serious: Yes (Other)
  Sender: FDA-Public Use
  Company Number: 2007SP006565

PATIENT
  Age: 42 Year
  Sex: Male

DRUGS (3)
  1. PEG-INTRON [Suspect]
     Indication: HEPATITIS C
     Dosage: ;SC
     Route: 058
     Dates: start: 20070314
  2. RIBAVIRIN [Suspect]
     Indication: HEPATITIS C
     Dosage: ;PO
     Route: 048
     Dates: start: 20070314
  3. CELEBREX [Concomitant]

REACTIONS (4)
  - ARTHRALGIA [None]
  - DEHYDRATION [None]
  - HYPERHIDROSIS [None]
  - MUSCLE TIGHTNESS [None]
